FAERS Safety Report 11655045 (Version 1)
Quarter: 2015Q4

REPORT INFORMATION
  Report Type: Spontaneous
  Country: US (occurrence: US)
  Receive Date: 20151023
  Receipt Date: 20151023
  Transmission Date: 20160304
  Serious: Yes (Hospitalization, Other)
  Sender: FDA-Public Use
  Company Number: US-UCBSA-2015033224

PATIENT
  Age: 0 Year
  Sex: Female
  Weight: .71 kg

DRUGS (1)
  1. CIMZIA [Suspect]
     Active Substance: CERTOLIZUMAB PEGOL
     Indication: RHEUMATOID ARTHRITIS
     Dosage: 1 SHOT,  EV 2 WEEKS(QOW)
     Route: 064
     Dates: start: 2014, end: 20150102

REACTIONS (4)
  - Premature baby [Recovered/Resolved]
  - Retinopathy [Recovered/Resolved]
  - Foetal exposure during pregnancy [Unknown]
  - Low birth weight baby [Unknown]

NARRATIVE: CASE EVENT DATE: 2014
